FAERS Safety Report 20706960 (Version 1)
Quarter: 2022Q2

REPORT INFORMATION
  Report Type: Report from Study
  Country: AT (occurrence: AT)
  Receive Date: 20220413
  Receipt Date: 20220413
  Transmission Date: 20220720
  Serious: Yes (Death, Other)
  Sender: FDA-Public Use
  Company Number: AT-NOVARTISPH-NVSC2021AT211195

PATIENT
  Age: 55 Year
  Sex: Female
  Weight: 93 kg

DRUGS (2)
  1. CAPMATINIB [Suspect]
     Active Substance: CAPMATINIB
     Indication: Non-small cell lung cancer stage IV
     Dosage: 400 MG, BID
     Route: 048
     Dates: start: 20201211, end: 20210322
  2. CAPMATINIB [Suspect]
     Active Substance: CAPMATINIB
     Dosage: 200 MG, BID
     Route: 048
     Dates: start: 20210413

REACTIONS (7)
  - Road traffic accident [Fatal]
  - Injury [Fatal]
  - Hepatotoxicity [Unknown]
  - Aspartate aminotransferase increased [Recovered/Resolved]
  - Alanine aminotransferase increased [Recovered/Resolved]
  - Generalised oedema [Not Recovered/Not Resolved]
  - Oedema peripheral [Unknown]

NARRATIVE: CASE EVENT DATE: 20210323
